FAERS Safety Report 6396223-5 (Version None)
Quarter: 2009Q4

REPORT INFORMATION
  Report Type: 
  Country: None (occurrence: None)
  Receive Date: 20091012
  Receipt Date: 20071016
  Transmission Date: 20100525
  Serious: Yes (Other)
  Sender: FDA-Public Use
  Company Number: US-ASTRAZENECA-2006UW27948

PATIENT
  Age: 540 Month
  Sex: Male
  Weight: 157.4 kg

DRUGS (19)
  1. SEROQUEL [Suspect]
     Indication: DEPRESSION
     Dosage: 150-300 MG
     Route: 048
     Dates: start: 20011012, end: 20060101
  2. SEROQUEL [Suspect]
     Indication: ANXIETY
     Dosage: 150-300 MG
     Route: 048
     Dates: start: 20011012, end: 20060101
  3. ABILIFY [Concomitant]
  4. BUSPAR [Concomitant]
     Dosage: 30-60 MG
     Dates: start: 20010101
  5. EFFEXOR [Concomitant]
     Dosage: 75-375 MG
     Dates: start: 19990628
  6. PREVACID [Concomitant]
     Dates: start: 20000731
  7. ENALAPRIL MALEATE [Concomitant]
     Dates: start: 20031210
  8. LANTUS [Concomitant]
     Dosage: 86 UNITS AT BEDTIME, 100 UNIT/ML
     Route: 058
     Dates: start: 20030304
  9. PIROXICAM [Concomitant]
     Dates: start: 20031210
  10. AMRIX [Concomitant]
     Dates: start: 20031210
  11. ASPIRIN [Concomitant]
     Dosage: 81 MG, 325 MG
     Dates: start: 20041027
  12. FLEXERIL [Concomitant]
     Dates: start: 19950325
  13. TYLENOL (CAPLET) [Concomitant]
     Indication: PAIN
     Dosage: ONE TO TWO P.O. Q.4 TO 6 HOURS P.R.N., ONE TABLET THREE TIMES A DAY
     Route: 048
     Dates: start: 19950325
  14. LASIX [Concomitant]
     Dosage: 20-160 MG
     Dates: start: 20030101
  15. HYDROCHLOROTHIAZIDE [Concomitant]
     Indication: HYPERTENSION
     Dates: start: 20001009, end: 20030101
  16. GEMFIBROZIL [Concomitant]
     Dates: start: 20020101
  17. ATENOLOL [Concomitant]
     Dosage: 50-100 MG
     Dates: start: 20040101
  18. PLAVIX [Concomitant]
     Dates: start: 20040101
  19. NIASPAN [Concomitant]
     Dates: start: 20020101

REACTIONS (4)
  - DIABETES MELLITUS [None]
  - DIABETES MELLITUS INADEQUATE CONTROL [None]
  - DIABETIC NEUROPATHY [None]
  - TYPE 2 DIABETES MELLITUS [None]
